FAERS Safety Report 6001206-0 (Version None)
Quarter: 2008Q4

REPORT INFORMATION
  Report Type: 
  Country: None (occurrence: None)
  Receive Date: 20081215
  Receipt Date: 20081202
  Transmission Date: 20090506
  Serious: Yes (Other)
  Sender: FDA-Public Use
  Company Number: US-ELI_LILLY_AND_COMPANY-US200811005323

PATIENT
  Sex: Male
  Weight: 226.76 kg

DRUGS (10)
  1. ZYPREXA [Suspect]
     Indication: PSYCHOTIC DISORDER
     Dosage: 20 MG, UNK
     Dates: start: 20081101, end: 20081118
  2. ZYPREXA [Suspect]
     Dosage: 1 D/F, UNK
     Dates: start: 20080101
  3. DEPAKOTE [Concomitant]
     Dosage: 500 MG, EACH MORNING
     Dates: start: 20081031, end: 20081118
  4. DEPAKOTE [Concomitant]
     Dosage: 1000 MG, EACH EVENING
  5. GEODON [Concomitant]
     Dosage: 80 MG, EACH EVENING
     Dates: start: 20081114, end: 20081118
  6. GEODON [Concomitant]
     Dosage: 1 D/F, UNK
     Dates: start: 20080101
  7. METFORMIN HCL [Concomitant]
     Dosage: 500 MG, UNK
     Dates: start: 20081031, end: 20081115
  8. METFORMIN HCL [Concomitant]
     Dosage: 1 D/F, UNK
     Dates: start: 20081125
  9. LIPITOR [Concomitant]
     Dosage: 20 MG, UNK
     Dates: start: 20081104, end: 20081120
  10. LIPITOR [Concomitant]
     Dosage: 1 D/F, UNK
     Dates: start: 20081125

REACTIONS (3)
  - AUTOIMMUNE DISORDER [None]
  - PLATELET COUNT DECREASED [None]
  - WEIGHT INCREASED [None]
